FAERS Safety Report 18577543 (Version 2)
Quarter: 2020Q4

REPORT INFORMATION
  Report Type: Spontaneous
  Country: PK (occurrence: PK)
  Receive Date: 20201203
  Receipt Date: 20201208
  Transmission Date: 20210114
  Serious: Yes (Other)
  Sender: FDA-Public Use
  Company Number: PK-AMGEN-PAKSP2020196679

PATIENT
  Age: 30 Year
  Sex: Male
  Weight: 70 kg

DRUGS (6)
  1. PROXEN [KETOPROFEN] [Suspect]
     Active Substance: KETOPROFEN
     Dosage: 1 UNK
     Route: 065
  2. ENBREL [Suspect]
     Active Substance: ETANERCEPT
     Indication: SPONDYLITIS
     Dosage: 50 MILLIGRAM, QWK
     Route: 058
  3. COSENTYX [Suspect]
     Active Substance: SECUKINUMAB
     Indication: PRODUCT USED FOR UNKNOWN INDICATION
     Dosage: 150 MILLIGRAM, QWK
     Route: 065
     Dates: start: 201811, end: 20201014
  4. PROXEN [KETOPROFEN] [Suspect]
     Active Substance: KETOPROFEN
     Indication: PRODUCT USED FOR UNKNOWN INDICATION
     Dosage: 1 DOSAGE FORM, AS NECESSARY (1 TABLET IN THE EVENING AFTER MEAL, AS PER NEED)
     Route: 065
  5. ENBREL [Suspect]
     Active Substance: ETANERCEPT
     Indication: ARTHRITIS
     Dosage: UNK
     Route: 065
  6. SUNNYD (COLECALCIFEROL) [Suspect]
     Active Substance: CHOLECALCIFEROL
     Indication: PRODUCT USED FOR UNKNOWN INDICATION
     Dosage: 1 DOSAGE FORM, (TAKE 1 CAPSULE AFTER 2 MONTH/ONCE IN 2 MONTHS, CONTINUE)
     Route: 065

REACTIONS (6)
  - Platelet count increased [Unknown]
  - Peripheral swelling [Unknown]
  - Drug ineffective for unapproved indication [Unknown]
  - Off label use [Unknown]
  - Condition aggravated [Unknown]
  - Neck pain [Unknown]

NARRATIVE: CASE EVENT DATE: 20201121
